FAERS Safety Report 9298314 (Version 1)
Quarter: 2012Q4

REPORT INFORMATION
  Report Type: Spontaneous
  Country: GB (occurrence: None)
  Receive Date: 20121003
  Receipt Date: 20121003
  Transmission Date: 20130627
  Serious: Yes (Death)
  Sender: FDA-Public Use
  Company Number: TPA2012A06457

PATIENT
  Age: 79 Year
  Sex: Male

DRUGS (7)
  1. ADENURIC [Suspect]
     Route: 048
  2. ASPIRIN (ACETYLSALICYLIC ACID) [Concomitant]
  3. DIGOXIN (DIGOXIN) [Concomitant]
  4. FELODIPINE (FELODIPINE) [Concomitant]
  5. METFORMIN (METFORMIN) [Concomitant]
  6. GLICLAZIDE (GLICLAZIDE) [Concomitant]
  7. LEVEMIR (INSULIN DETEMIR) [Concomitant]

REACTIONS (2)
  - Cerebral haemorrhage [None]
  - Thrombotic stroke [None]
